FAERS Safety Report 4613807-2 (Version None)
Quarter: 2005Q1

REPORT INFORMATION
  Report Type: 
  Country: None (occurrence: None)
  Receive Date: 20050315
  Receipt Date: 20050225
  Transmission Date: 20050727
  Serious: Yes (Death)
  Sender: FDA-Public Use
  Company Number: 10448

PATIENT

DRUGS (2)
  1. PACLITAXEL [Suspect]
     Indication: NEOPLASM
     Dosage: 100 MG/M2 ONCE, IV
     Route: 042
  2. DOXORUBICIN HCL [Suspect]
     Indication: NEOPLASM
     Dosage: 12.5 MG/M2 ONCE, IV
     Route: 042

REACTIONS (1)
  - CARDIAC ARREST [None]
